FAERS Safety Report 25522714 (Version 1)
Quarter: 2025Q3

REPORT INFORMATION
  Report Type: Spontaneous
  Country: US (occurrence: US)
  Receive Date: 20250707
  Receipt Date: 20250707
  Transmission Date: 20251020
  Serious: No
  Sender: SANDOZ
  Company Number: US-SANDOZ-SDZ2025US046554

PATIENT
  Sex: Female
  Weight: 47.619 kg

DRUGS (1)
  1. RECLAST [Suspect]
     Active Substance: ZOLEDRONIC ACID
     Indication: Bone density abnormal
     Route: 065

REACTIONS (3)
  - Jaw disorder [Recovered/Resolved]
  - Headache [Not Recovered/Not Resolved]
  - Pain [Not Recovered/Not Resolved]
